FAERS Safety Report 20199305 (Version 1)
Quarter: 2021Q4

REPORT INFORMATION
  Report Type: Spontaneous
  Country: US (occurrence: None)
  Receive Date: 20211216
  Receipt Date: 20211216
  Transmission Date: 20220303
  Serious: Yes (Other)
  Sender: FDA-Public Use
  Company Number: None

PATIENT
  Age: 62 Year
  Sex: Male
  Weight: 74.84 kg

DRUGS (2)
  1. NEBIVOLOL [Suspect]
     Active Substance: NEBIVOLOL
     Indication: Essential hypertension
     Dates: start: 20210930, end: 20211114
  2. BISOPROLOL [Suspect]
     Active Substance: BISOPROLOL
     Indication: Essential hypertension
     Dosage: FREQUENCY : DAILY;?
     Route: 048
     Dates: start: 20210930, end: 20211114

REACTIONS (2)
  - Fatigue [None]
  - Coordination abnormal [None]

NARRATIVE: CASE EVENT DATE: 20210930
